FAERS Safety Report 10155434 (Version 1)
Quarter: 2014Q2

REPORT INFORMATION
  Report Type: Spontaneous
  Country: AU (occurrence: AU)
  Receive Date: 20140506
  Receipt Date: 20140506
  Transmission Date: 20141212
  Serious: Yes (Hospitalization)
  Sender: FDA-Public Use
  Company Number: PHHY2014AU053068

PATIENT
  Age: 90 Year
  Sex: Female

DRUGS (1)
  1. TRIMETHOPRIM [Suspect]
     Indication: CYSTITIS ESCHERICHIA
     Dosage: 300 MG, QD

REACTIONS (4)
  - Delirium [Recovering/Resolving]
  - Hyponatraemia [Recovering/Resolving]
  - Vomiting [Unknown]
  - Nausea [Unknown]
